FAERS Safety Report 8195598-4 (Version None)
Quarter: 2012Q1

REPORT INFORMATION
  Report Type: 
  Country: None (occurrence: None)
  Receive Date: 20120308
  Receipt Date: 20120229
  Transmission Date: 20120608
  Serious: Yes (Disabling)
  Sender: FDA-Public Use
  Company Number: AE-ASTRAZENECA-2012SE14022

PATIENT
  Age: 48 Year
  Sex: Male

DRUGS (4)
  1. ACE [Concomitant]
  2. CRESTOR [Suspect]
     Indication: HYPERLIPIDAEMIA
     Route: 048
     Dates: start: 20120129, end: 20120205
  3. ASPIRIN [Concomitant]
  4. CLOPIDOGREL [Concomitant]

REACTIONS (2)
  - DRY SKIN [None]
  - RHABDOMYOLYSIS [None]
